FAERS Safety Report 15085248 (Version 8)
Quarter: 2019Q2

REPORT INFORMATION
  Report Type: Report from Study
  Country: US (occurrence: US)
  Receive Date: 20180628
  Receipt Date: 20190411
  Transmission Date: 20190711
  Serious: Yes (Hospitalization, Other)
  Sender: FDA-Public Use
  Company Number: US-ACTELION-A-NJ2018-174376

PATIENT
  Age: 43 Year
  Sex: Male

DRUGS (22)
  1. CLOPIDOGREL [Concomitant]
     Active Substance: CLOPIDOGREL BISULFATE
  2. CEFDINIR. [Concomitant]
     Active Substance: CEFDINIR
  3. PREDNISONE. [Concomitant]
     Active Substance: PREDNISONE
  4. PROAIR HFA [Concomitant]
     Active Substance: ALBUTEROL SULFATE
  5. LINZESS [Concomitant]
     Active Substance: LINACLOTIDE
  6. LEVOFLOXACIN. [Concomitant]
     Active Substance: LEVOFLOXACIN
     Dosage: 500 MG, UNK
  7. DOXYCYCLINE. [Concomitant]
     Active Substance: DOXYCYCLINE
     Dosage: 100 MG, UNK
  8. BACLOFEN. [Concomitant]
     Active Substance: BACLOFEN
  9. CHLORHEX [Concomitant]
     Active Substance: CHLORHEXIDINE GLUCONATE
  10. ALBUTEROL. [Concomitant]
     Active Substance: ALBUTEROL
  11. HUMALOG [Concomitant]
     Active Substance: INSULIN LISPRO
  12. OMEPRAZOLE. [Concomitant]
     Active Substance: OMEPRAZOLE
  13. OPSUMIT [Suspect]
     Active Substance: MACITENTAN
     Indication: PULMONARY ARTERIAL HYPERTENSION
     Dosage: 10 MG, QD
     Route: 048
     Dates: start: 20170317
  14. EPINEPHRINE. [Concomitant]
     Active Substance: EPINEPHRINE
     Dosage: 0.3 MG, UNK
  15. EXTRA ACTION COUGH [Concomitant]
     Active Substance: DEXTROMETHORPHAN HYDROBROMIDE\GUAIFENESIN
  16. ZINC OXIDE. [Concomitant]
     Active Substance: ZINC OXIDE
  17. ELIQUIS [Concomitant]
     Active Substance: APIXABAN
  18. CLINDAMYCIN. [Concomitant]
     Active Substance: CLINDAMYCIN
     Dosage: 300 MG, UNK
  19. OXYCODONE [Concomitant]
     Active Substance: OXYCODONE
  20. PENICILLIN [Concomitant]
     Active Substance: PENICILLIN
     Dosage: 500 MG, UNK
  21. PANTOPRAZOLE [Concomitant]
     Active Substance: PANTOPRAZOLE
     Dosage: 40 MG, UNK
  22. SULFAMETHOXAZOLE AND TRIMETHOPRIM [Concomitant]
     Active Substance: SULFAMETHOXAZOLE\TRIMETHOPRIM

REACTIONS (4)
  - Localised infection [Recovered/Resolved]
  - Hospitalisation [Unknown]
  - Dialysis [Unknown]
  - Arterial repair [Not Recovered/Not Resolved]

NARRATIVE: CASE EVENT DATE: 20181114
